FAERS Safety Report 4980643-7 (Version None)
Quarter: 2006Q2

REPORT INFORMATION
  Report Type: 
  Country: None (occurrence: None)
  Receive Date: 20060424
  Receipt Date: 20060228
  Transmission Date: 20061013
  Serious: Yes (Other)
  Sender: FDA-Public Use
  Company Number: JP-ROCHE-438960

PATIENT
  Age: 14 Year
  Sex: Male
  Weight: 44 kg

DRUGS (6)
  1. TAMIFLU [Suspect]
     Route: 048
     Dates: start: 20060220, end: 20060220
  2. TAMIFLU [Suspect]
     Route: 048
     Dates: start: 20060221, end: 20060224
  3. TAMIFLU [Suspect]
     Route: 048
     Dates: start: 20060225, end: 20060225
  4. ACETAMINOPHEN [Concomitant]
     Route: 048
     Dates: start: 20060220, end: 20060225
  5. MEDICON [Concomitant]
     Route: 048
     Dates: start: 20060220, end: 20060225
  6. HUSTAGIN [Concomitant]
     Route: 048
     Dates: start: 20060220, end: 20060225

REACTIONS (1)
  - ABNORMAL BEHAVIOUR [None]
